FAERS Safety Report 5121257-8 (Version None)
Quarter: 2006Q4

REPORT INFORMATION
  Report Type: 
  Country: None (occurrence: None)
  Receive Date: 20061005
  Receipt Date: 20060908
  Transmission Date: 20070319
  Serious: Yes (Hospitalization)
  Sender: FDA-Public Use
  Company Number: US-BOEHRINGER INGELHEIM PHARMACEUTICALS, INC.-2006-BP-11039BP

PATIENT
  Age: 48 Year
  Sex: Male

DRUGS (18)
  1. AGGRENOX [Suspect]
     Indication: VASCULAR SHUNT
     Dates: start: 20050519, end: 20050823
  2. PLACEBO CAPSULES (BLIND) [Suspect]
     Indication: VASCULAR SHUNT
     Dates: start: 20050519, end: 20050823
  3. AMBIEN [Concomitant]
  4. ASPIRIN [Concomitant]
  5. ATENOLOL [Concomitant]
  6. COLACE [Concomitant]
  7. EPOGEN [Concomitant]
     Dosage: STRENGTH = 2000 U/ML
  8. FOLIC ACID [Concomitant]
  9. HEPARIN SODIUM [Concomitant]
     Dosage: STRENGTH = 1000 U/ML
  10. LIPITOR [Concomitant]
  11. NEURONTIN [Concomitant]
  12. NORVASC [Concomitant]
  13. PHOSLO [Concomitant]
  14. VENOFER [Concomitant]
     Dosage: 20 MG/ML
  15. DIOVAN [Concomitant]
  16. DIOVAN [Concomitant]
  17. HUMULIN 50/50 [Concomitant]
     Dosage: STRENGTH = 50 U/ML-50 U/ML
  18. NEPHROCAPS [Concomitant]

REACTIONS (4)
  - ADVERSE DRUG REACTION [None]
  - CHOLANGITIS ACUTE [None]
  - HEPATITIS ACUTE [None]
  - POST PROCEDURAL HAEMORRHAGE [None]
